FAERS Safety Report 5611824-7 (Version None)
Quarter: 2008Q1

REPORT INFORMATION
  Report Type: 
  Country: None (occurrence: None)
  Receive Date: 20080204
  Receipt Date: 20080124
  Transmission Date: 20080703
  Serious: Yes (Other)
  Sender: FDA-Public Use
  Company Number: US-JNJFOC-20080106741

PATIENT
  Sex: Male
  Weight: 136.08 kg

DRUGS (3)
  1. FENTANYL TRANSDERMAL SYSTEM [Suspect]
     Indication: INTERVERTEBRAL DISC PROTRUSION
     Route: 062
  2. FENTANYL TRANSDERMAL SYSTEM [Suspect]
     Indication: SPINAL COLUMN STENOSIS
     Route: 062
  3. FENTANYL TRANSDERMAL SYSTEM [Suspect]
     Indication: BACK PAIN
     Route: 062

REACTIONS (6)
  - CIRCADIAN RHYTHM SLEEP DISORDER [None]
  - INADEQUATE ANALGESIA [None]
  - INAPPROPRIATE SCHEDULE OF DRUG ADMINISTRATION [None]
  - LIBIDO DISORDER [None]
  - MOOD ALTERED [None]
  - PHARMACEUTICAL PRODUCT COMPLAINT [None]
